FAERS Safety Report 8012297-X (Version None)
Quarter: 2011Q4

REPORT INFORMATION
  Report Type: 
  Country: None (occurrence: None)
  Receive Date: 20111228
  Receipt Date: 20111219
  Transmission Date: 20120403
  Serious: Yes (Death)
  Sender: FDA-Public Use
  Company Number: US-PFIZER INC-2011309854

PATIENT
  Age: 17 Year
  Sex: Female

DRUGS (18)
  1. IBUPROFEN [Suspect]
  2. GUAIFENESIN [Suspect]
  3. HYDROCODONE [Suspect]
  4. METHYLPHENIDATE [Suspect]
  5. DEXTROMETHORPHAN HYDROBROMIDE [Suspect]
  6. ACETAMINOPHEN AND HYDROCODONE BITARTRATE [Suspect]
  7. LOPERAMIDE [Suspect]
  8. PSEUDOEPHEDRINE HCL [Suspect]
  9. ACETAMINOPHEN [Suspect]
  10. CITALOPRAM [Suspect]
  11. NAPROXEN [Suspect]
  12. MAGNESIUM [Suspect]
  13. MONTELUKAST [Suspect]
  14. FLUOXETINE [Suspect]
  15. HALOPERIDOL [Suspect]
  16. PHENOL [Suspect]
  17. HYOSCYAMINE [Suspect]
  18. ROSUVASTATIN [Suspect]

REACTIONS (1)
  - COMPLETED SUICIDE [None]
